FAERS Safety Report 4682510-5 (Version None)
Quarter: 2005Q2

REPORT INFORMATION
  Report Type: 
  Country: None (occurrence: None)
  Receive Date: 20050531
  Receipt Date: 20050317
  Transmission Date: 20051028
  Serious: No
  Sender: FDA-Public Use
  Company Number: 2005BI006436

PATIENT
  Sex: Male

DRUGS (4)
  1. AMEVIVE [Suspect]
     Indication: PSORIASIS
     Dosage: 15 MG; IM
     Route: 030
     Dates: start: 20041115, end: 20041212
  2. L-DOPA [Concomitant]
  3. AMBIEN [Concomitant]
  4. ULTRAVATE [Concomitant]

REACTIONS (1)
  - DRUG ERUPTION [None]
